FAERS Safety Report 19553232 (Version 1)
Quarter: 2021Q3

REPORT INFORMATION
  Report Type: Spontaneous
  Country: US (occurrence: US)
  Receive Date: 20210715
  Receipt Date: 20210715
  Transmission Date: 20211014
  Serious: No
  Sender: FDA-Public Use
  Company Number: US-AMGEN-USASP2021107148

PATIENT
  Age: 71 Year
  Sex: Female

DRUGS (6)
  1. ELAVIL [Concomitant]
     Active Substance: AMITRIPTYLINE HYDROCHLORIDE
     Dosage: 10 MILLIGRAM, QD
  2. ALEVE [Concomitant]
     Active Substance: NAPROXEN SODIUM
  3. REPATHA [Suspect]
     Active Substance: EVOLOCUMAB
     Indication: PRODUCT USED FOR UNKNOWN INDICATION
     Dosage: 140 MILLIGRAM, Q2WK
     Route: 065
     Dates: start: 20210625
  4. MIRALAX [Concomitant]
     Active Substance: POLYETHYLENE GLYCOL 3350
     Dosage: UNK, QD
  5. ADVIL [Concomitant]
     Active Substance: IBUPROFEN
  6. NEXIUM I.V. [Concomitant]
     Active Substance: ESOMEPRAZOLE SODIUM
     Dosage: 40 MILLIGRAM, EVERY 3RD DAY

REACTIONS (2)
  - Cystitis interstitial [Not Recovered/Not Resolved]
  - Uterine disorder [Unknown]

NARRATIVE: CASE EVENT DATE: 20210625
